FAERS Safety Report 13105047 (Version 1)
Quarter: 2017Q1

REPORT INFORMATION
  Report Type: Spontaneous
  Country: BR (occurrence: BR)
  Receive Date: 20170111
  Receipt Date: 20170111
  Transmission Date: 20170428
  Serious: Yes (Other)
  Sender: FDA-Public Use
  Company Number: BR-PFIZER INC-2017008698

PATIENT
  Sex: Female

DRUGS (2)
  1. INSULIN [Concomitant]
     Active Substance: INSULIN NOS
     Indication: DIABETES MELLITUS
     Dosage: IN THE MORNING, IN THE AFTERNOON
  2. ADVIL [Suspect]
     Active Substance: IBUPROFEN
     Dosage: UNK
     Route: 048

REACTIONS (5)
  - Hypoglycaemia [Unknown]
  - Blood glucose fluctuation [Unknown]
  - Seizure [Unknown]
  - Neurological symptom [Unknown]
  - Malaise [Unknown]

NARRATIVE: CASE EVENT DATE: 20170106
